FAERS Safety Report 19091330 (Version 3)
Quarter: 2024Q1

REPORT INFORMATION
  Report Type: Spontaneous
  Country: IT (occurrence: IT)
  Receive Date: 20210405
  Receipt Date: 20240312
  Transmission Date: 20240410
  Serious: Yes (Death, Hospitalization, Other)
  Sender: FDA-Public Use
  Company Number: IT-CELLTRION INC.-2021IT004328

PATIENT

DRUGS (9)
  1. RITUXIMAB [Suspect]
     Active Substance: RITUXIMAB
     Indication: Lymphoplasmacytoid lymphoma/immunocytoma
     Dosage: UNK, (END OF JANUARY 2020)
     Route: 065
     Dates: start: 202001
  2. RITUXIMAB [Suspect]
     Active Substance: RITUXIMAB
     Indication: Non-Hodgkin^s lymphoma
  3. BENDAMUSTINE HYDROCHLORIDE [Suspect]
     Active Substance: BENDAMUSTINE HYDROCHLORIDE
     Indication: Non-Hodgkin^s lymphoma
     Dosage: UNK, (END OF JANUARY 2020)
     Route: 065
     Dates: start: 202001
  4. BENDAMUSTINE [Suspect]
     Active Substance: BENDAMUSTINE
     Indication: Non-Hodgkin^s lymphoma
     Dosage: UNK
     Route: 065
     Dates: start: 202001
  5. CEFTRIAXONE [Concomitant]
     Active Substance: CEFTRIAXONE\CEFTRIAXONE SODIUM
     Indication: COVID-19
     Dosage: 2 G
     Route: 042
     Dates: start: 202003, end: 202003
  6. DARUNAVIR/ COBICISTAT [Concomitant]
     Indication: COVID-19
     Dosage: 1 DF, QD (PER DAY)
     Route: 048
     Dates: start: 202003, end: 202003
  7. HYDROXYCHLOROQUINE [Concomitant]
     Active Substance: HYDROXYCHLOROQUINE
     Indication: COVID-19
     Dosage: 200 MG, EVERY 0.5 DAY
     Route: 048
     Dates: start: 202003, end: 202003
  8. TRIMETHOPRIME/ SULFAMETHOXAZOLE [Concomitant]
     Indication: COVID-19
     Dosage: TRIMETHOPRIME 160MG PLUS SULFAMETHOXAZOLE 800MG
     Route: 048
     Dates: start: 202003, end: 202003
  9. LOPINAVIR\RITONAVIR [Concomitant]
     Active Substance: LOPINAVIR\RITONAVIR
     Indication: COVID-19
     Dosage: 1 DF, EVERY 0.5 DAY
     Route: 048
     Dates: start: 202003, end: 202003

REACTIONS (5)
  - Diarrhoea [Fatal]
  - COVID-19 [Fatal]
  - Respiratory failure [Fatal]
  - Off label use [Fatal]
  - Intentional product use issue [Unknown]

NARRATIVE: CASE EVENT DATE: 20200101
